FAERS Safety Report 5640757-5 (Version None)
Quarter: 2008Q1

REPORT INFORMATION
  Report Type: 
  Country: None (occurrence: None)
  Receive Date: 20080225
  Receipt Date: 20080211
  Transmission Date: 20080703
  Serious: Yes (Death, Hospitalization)
  Sender: FDA-Public Use
  Company Number: 2008S1001505

PATIENT
  Age: 46 Year
  Sex: Female

DRUGS (11)
  1. NITROFURANTOIN [Suspect]
     Indication: NEUROGENIC BLADDER
     Dosage: 50 MG; AT BEDTIME; ORAL, 100 MG; AT BEDTIME; ORAL
     Route: 048
     Dates: start: 20040101, end: 20070901
  2. NITROFURANTOIN [Suspect]
     Indication: PROPHYLAXIS URINARY TRACT INFECTION
     Dosage: 50 MG; AT BEDTIME; ORAL, 100 MG; AT BEDTIME; ORAL
     Route: 048
     Dates: start: 20040101, end: 20070901
  3. NITROFURANTOIN [Suspect]
     Indication: NEUROGENIC BLADDER
     Dosage: 50 MG; AT BEDTIME; ORAL, 100 MG; AT BEDTIME; ORAL
     Route: 048
     Dates: start: 20040101, end: 20070901
  4. NITROFURANTOIN [Suspect]
     Indication: PROPHYLAXIS URINARY TRACT INFECTION
     Dosage: 50 MG; AT BEDTIME; ORAL, 100 MG; AT BEDTIME; ORAL
     Route: 048
     Dates: start: 20040101, end: 20070901
  5. NITROFURANTOIN [Suspect]
     Indication: PROPHYLAXIS URINARY TRACT INFECTION
     Dosage: 50 MG; AT BEDTIME; ORAL
     Route: 048
     Dates: start: 20040101, end: 20070901
  6. NITROFURANTOIN [Suspect]
     Indication: PROPHYLAXIS URINARY TRACT INFECTION
     Dosage: 50 MG; AT BEDTIME; ORAL
     Route: 048
     Dates: start: 20040101, end: 20070901
  7. NORTRIPTYLINE (CON.) [Concomitant]
  8. OXYBUTYNIN (CON.) [Concomitant]
  9. ATENOLOL (CON.) [Concomitant]
  10. NAPROXEN (CON.) [Concomitant]
  11. BACLOFEN (CON.) [Concomitant]

REACTIONS (10)
  - HEPATIC CIRRHOSIS [None]
  - HEPATOTOXICITY [None]
  - INTERSTITIAL LUNG DISEASE [None]
  - LUNG DISORDER [None]
  - PNEUMOTHORAX [None]
  - PULMONARY FIBROSIS [None]
  - PULMONARY TOXICITY [None]
  - RESPIRATORY DISORDER [None]
  - RESPIRATORY DISTRESS [None]
  - TRANSAMINASES INCREASED [None]
